FAERS Safety Report 5020895-0 (Version None)
Quarter: 2006Q2

REPORT INFORMATION
  Report Type: 
  Country: None (occurrence: None)
  Receive Date: 20060608
  Receipt Date: 20060530
  Transmission Date: 20061013
  Serious: Yes (Other)
  Sender: FDA-Public Use
  Company Number: PHEH2006US06975

PATIENT
  Sex: Female

DRUGS (2)
  1. AREDIA [Suspect]
     Indication: BONE DISORDER
     Dosage: UNK, UNK
     Dates: start: 20000701, end: 20020301
  2. ZOMETA [Suspect]
     Indication: BONE DISORDER
     Dates: start: 20020301, end: 20050301

REACTIONS (5)
  - ANHEDONIA [None]
  - EMOTIONAL DISORDER [None]
  - INJURY [None]
  - OSTEONECROSIS [None]
  - PAIN [None]
